FAERS Safety Report 7008784-3 (Version None)
Quarter: 2010Q3

REPORT INFORMATION
  Report Type: 
  Country: None (occurrence: None)
  Receive Date: 20100921
  Receipt Date: 20100909
  Transmission Date: 20110219
  Serious: Yes (Hospitalization)
  Sender: FDA-Public Use
  Company Number: 2010090024

PATIENT
  Age: 32 Year
  Sex: Female

DRUGS (5)
  1. D-PENICILLAMINE (PENICILLAMINE) [Suspect]
     Indication: HEPATO-LENTICULAR DEGENERATION
     Dosage: 1 GM (0.25 GM, 4 IN 1 D), ORAL
     Route: 048
     Dates: start: 20020101
  2. FUROSEMIDE [Concomitant]
  3. URSODEXYCHOLIC ACID (URSODEOXYCHOLIC ACID) [Concomitant]
  4. LACTULOSE [Concomitant]
  5. OMEPRAZOLE [Concomitant]

REACTIONS (11)
  - DENTAL CARIES [None]
  - DYSPHAGIA [None]
  - ERYTHEMA [None]
  - EXTRAVASATION [None]
  - GINGIVAL BLEEDING [None]
  - GINGIVAL HYPERPLASIA [None]
  - GINGIVAL RECESSION [None]
  - GINGIVITIS ULCERATIVE [None]
  - MASTICATION DISORDER [None]
  - PERIODONTITIS [None]
  - RASH PAPULAR [None]
